FAERS Safety Report 7424277-3 (Version None)
Quarter: 2011Q2

REPORT INFORMATION
  Report Type: 
  Country: None (occurrence: None)
  Receive Date: 20110413
  Receipt Date: 20110404
  Transmission Date: 20111010
  Serious: Yes (Life-Threatening, Hospitalization)
  Sender: FDA-Public Use
  Company Number: TCI2011A02260

PATIENT
  Age: 4 Decade
  Sex: Male

DRUGS (1)
  1. TAKEPRON OD TABLETS 30 (LANSOPRAZOLE) [Suspect]
     Indication: REFLUX OESOPHAGITIS
     Dosage: 30 MG (30 MG, 1 IN 1 D) PER ORAL
     Route: 048

REACTIONS (6)
  - PLATELET COUNT DECREASED [None]
  - LEUKAEMIA [None]
  - NASOPHARYNGITIS [None]
  - PALLOR [None]
  - ANAEMIA [None]
  - WHITE BLOOD CELL COUNT DECREASED [None]
